FAERS Safety Report 6308745-3 (Version None)
Quarter: 2009Q3

REPORT INFORMATION
  Report Type: 
  Country: None (occurrence: None)
  Receive Date: 20090813
  Receipt Date: 20080417
  Transmission Date: 20100115
  Serious: No
  Sender: FDA-Public Use
  Company Number: US-ALLERGAN-0804650US

PATIENT
  Age: 70 Year
  Sex: Female

DRUGS (2)
  1. COMBIGAN [Suspect]
     Indication: PROPHYLAXIS
     Dosage: 1 GTT, BID
     Route: 047
     Dates: start: 20080317
  2. COMBIGAN [Suspect]
     Indication: INTRAOCULAR PRESSURE INCREASED

REACTIONS (4)
  - ABDOMINAL DISCOMFORT [None]
  - DIZZINESS [None]
  - EYE IRRITATION [None]
  - FOREIGN BODY SENSATION IN EYES [None]
